FAERS Safety Report 7071726-9 (Version None)
Quarter: 2010Q4

REPORT INFORMATION
  Report Type: 
  Country: None (occurrence: None)
  Receive Date: 20101029
  Receipt Date: 20091013
  Transmission Date: 20110411
  Serious: No
  Sender: FDA-Public Use
  Company Number: A0811600A

PATIENT
  Sex: Female

DRUGS (4)
  1. ADVAIR DISKUS 100/50 [Suspect]
     Indication: SARCOIDOSIS
     Dosage: 1PUFF TWICE PER DAY
     Route: 055
     Dates: start: 20090601, end: 20090701
  2. CALCIUM WITH VITAMIN D [Concomitant]
  3. PREDNISONE [Concomitant]
  4. NEXIUM [Concomitant]

REACTIONS (2)
  - THROAT TIGHTNESS [None]
  - TONGUE DISORDER [None]
